FAERS Safety Report 8082582-4 (Version None)
Quarter: 2012Q1

REPORT INFORMATION
  Report Type: 
  Country: None (occurrence: None)
  Receive Date: 20120127
  Receipt Date: 20110222
  Transmission Date: 20120608
  Serious: No
  Sender: FDA-Public Use
  Company Number: US-ABBOTT-11P-163-0707044-00

PATIENT
  Age: 33 Year
  Sex: Female

DRUGS (4)
  1. CELEXA [Concomitant]
     Indication: PRODUCT USED FOR UNKNOWN INDICATION
  2. KLONOPIN [Concomitant]
     Indication: PRODUCT USED FOR UNKNOWN INDICATION
  3. SEROQUEL [Concomitant]
     Indication: PRODUCT USED FOR UNKNOWN INDICATION
     Dosage: AT BEDTIME
  4. HUMIRA [Suspect]
     Indication: PSORIASIS
     Dates: start: 20090601

REACTIONS (6)
  - NASOPHARYNGITIS [None]
  - SINUSITIS [None]
  - PNEUMONIA MYCOPLASMAL [None]
  - EAR INFECTION [None]
  - INFECTION SUSCEPTIBILITY INCREASED [None]
  - HEPATITIS B ANTIBODY NEGATIVE [None]
